FAERS Safety Report 9586405 (Version 1)
Quarter: 2013Q3

REPORT INFORMATION
  Report Type: Spontaneous
  Country: KR (occurrence: None)
  Receive Date: 20130926
  Receipt Date: 20130926
  Transmission Date: 20140515
  Serious: Yes (Other)
  Sender: FDA-Public Use
  Company Number: 2013-01384

PATIENT
  Age: 65 Year
  Sex: Female

DRUGS (3)
  1. VALPROIC ACID [Suspect]
     Indication: EPILEPSY
     Route: 048
  2. PHENYTOIN [Suspect]
  3. CARBAMAZEPINE [Suspect]

REACTIONS (1)
  - Toxic encephalopathy [None]
